FAERS Safety Report 7878873-X (Version None)
Quarter: 2011Q4

REPORT INFORMATION
  Report Type: 
  Country: None (occurrence: None)
  Receive Date: 20111024
  Receipt Date: 20110718
  Transmission Date: 20120403
  Serious: Yes (Hospitalization)
  Sender: FDA-Public Use
  Company Number: AMAG201100159

PATIENT
  Age: 79 Year
  Sex: Male
  Weight: 191 kg

DRUGS (15)
  1. NIFEDIPINE [Concomitant]
  2. LIPITOR [Concomitant]
  3. TRENTAL (PENTOXIFYLINE) [Concomitant]
  4. CELEXA [Concomitant]
  5. FLOMAX [Concomitant]
  6. FERAHEME [Suspect]
     Indication: IRON DEFICIENCY ANAEMIA
     Dosage: 510 MG, SINGLE, INTRAVENOUS
     Route: 042
     Dates: start: 20101104, end: 20101104
  7. FERAHEME [Suspect]
     Indication: RENAL FAILURE CHRONIC
     Dosage: 510 MG, SINGLE, INTRAVENOUS
     Route: 042
     Dates: start: 20101104, end: 20101104
  8. ATENOLOL [Concomitant]
  9. KLOR-CON [Concomitant]
  10. SYMBICORT [Concomitant]
  11. PHENOBARBITAL TAB [Concomitant]
  12. FLONASE [Concomitant]
  13. LASIX [Concomitant]
  14. PLAVIX [Concomitant]
  15. ZYRTEC [Concomitant]

REACTIONS (9)
  - ANAPHYLACTIC REACTION [None]
  - NAUSEA [None]
  - FLUSHING [None]
  - HYPOTENSION [None]
  - HYPERHIDROSIS [None]
  - PAIN [None]
  - DYSPNOEA [None]
  - SYNCOPE [None]
  - MALAISE [None]
